FAERS Safety Report 7943550-3 (Version None)
Quarter: 2011Q4

REPORT INFORMATION
  Report Type: 
  Country: None (occurrence: None)
  Receive Date: 20111128
  Receipt Date: 20111115
  Transmission Date: 20120403
  Serious: Yes (Hospitalization)
  Sender: FDA-Public Use
  Company Number: PHEH2011US06712

PATIENT
  Sex: Female

DRUGS (8)
  1. PRAVASTATIN [Concomitant]
     Dosage: UNK,
  2. DIOVAN [Suspect]
     Dosage: 2 DF, QD (160 MG)
  3. FUROSEMIDE [Suspect]
     Dosage: UNK,
  4. IPRATROPIUM BROMIDE [Suspect]
     Dosage: 0.5/3 MG, UNK
  5. ALBUTEROL [Concomitant]
     Dosage: UNK,
  6. COMBIVENT [Concomitant]
     Dosage: UNK,
  7. BETA BLOCKING AGENTS [Suspect]
  8. DIOVAN [Suspect]
     Dosage: 2 DF, QD (80 MG)

REACTIONS (2)
  - LOSS OF CONSCIOUSNESS [None]
  - HYPOTENSION [None]
